FAERS Safety Report 10472722 (Version 2)
Quarter: 2014Q3

REPORT INFORMATION
  Report Type: Report from Study
  Country: JP (occurrence: JP)
  Receive Date: 20140924
  Receipt Date: 20140924
  Transmission Date: 20150326
  Serious: Yes (Hospitalization, Other)
  Sender: FDA-Public Use
  Company Number: JP-CUBIST PHARMACEUTICALS, INC.-2014CBST001152

PATIENT

DRUGS (23)
  1. DIART [Concomitant]
     Active Substance: AZOSEMIDE
     Indication: PRODUCT USED FOR UNKNOWN INDICATION
     Dosage: 30 MG, QD
     Route: 048
     Dates: start: 20140501
  2. NAUZELIN [Concomitant]
     Active Substance: DOMPERIDONE
     Indication: PROPHYLAXIS
     Dosage: 30 MG, UNK
     Route: 048
     Dates: start: 20140524, end: 20140605
  3. RYTHMODAN                          /00271801/ [Concomitant]
     Active Substance: DISOPYRAMIDE
     Indication: ARRHYTHMIA
     Dosage: 150 MG, UNK
     Route: 048
     Dates: start: 20140601, end: 20140604
  4. DOPAMINE [Concomitant]
     Active Substance: DOPAMINE\DOPAMINE HYDROCHLORIDE
     Indication: PRODUCT USED FOR UNKNOWN INDICATION
     Dosage: 600 MG, QD
     Route: 051
     Dates: start: 20140522
  5. CUBICIN [Suspect]
     Active Substance: DAPTOMYCIN
     Indication: OFF LABEL USE
     Dosage: 6.2 MG/KG, QD
     Route: 041
     Dates: start: 20140606, end: 20140610
  6. PANTOL                             /00223901/ [Concomitant]
     Indication: PROPHYLAXIS
     Dosage: 1500 MG, UNK
     Route: 051
     Dates: start: 20140530
  7. HUMULIN NOS [Concomitant]
     Active Substance: INSULIN HUMAN
     Indication: DIABETES MELLITUS
     Dosage: 30 (UNDER 1000 UNIT), QD
     Route: 051
     Dates: start: 20140605
  8. FENTANYL                           /00174602/ [Concomitant]
     Active Substance: FENTANYL
     Indication: PRODUCT USED FOR UNKNOWN INDICATION
     Dosage: 0.2 MG, QD
     Route: 051
     Dates: start: 20140531, end: 20140531
  9. PROPOFOL. [Concomitant]
     Active Substance: PROPOFOL
     Indication: PRODUCT USED FOR UNKNOWN INDICATION
     Dosage: 2 G, QD
     Route: 051
     Dates: start: 20140531
  10. CUBICIN [Suspect]
     Active Substance: DAPTOMYCIN
     Indication: STAPHYLOCOCCAL SEPSIS
     Dosage: 6.2 MG/KG, QOD
     Route: 041
     Dates: start: 20140531, end: 20140604
  11. MANNITOL. [Concomitant]
     Active Substance: MANNITOL
     Indication: PRODUCT USED FOR UNKNOWN INDICATION
     Dosage: 300 ML, QD
     Route: 051
     Dates: start: 20140609
  12. REMODULIN [Concomitant]
     Active Substance: TREPROSTINIL
     Indication: STAPHYLOCOCCAL SEPSIS
     Dosage: 1 DF, QD
     Route: 051
     Dates: start: 20140604, end: 20140608
  13. HABEKACIN                          /01069402/ [Concomitant]
     Indication: STAPHYLOCOCCAL SEPSIS
     Dosage: 60 MG, QD
     Route: 051
     Dates: start: 20140604, end: 20140608
  14. NOREPINEPHRINE [Concomitant]
     Active Substance: NOREPINEPHRINE\NOREPINEPHRINE BITARTRATE
     Indication: CARDIAC FAILURE
     Dosage: 10 MG, QD
     Route: 051
     Dates: start: 20140604, end: 20140609
  15. LASIX [Concomitant]
     Active Substance: FUROSEMIDE
     Indication: PRODUCT USED FOR UNKNOWN INDICATION
     Dosage: 40 MG, BID
     Route: 051
     Dates: start: 20140602
  16. SULBACILLIN [Concomitant]
     Active Substance: AMPICILLIN SODIUM\SULBACTAM SODIUM
     Indication: PRODUCT USED FOR UNKNOWN INDICATION
     Dosage: 1.5 G, BID
     Route: 051
     Dates: start: 20140604, end: 20140609
  17. VANCOMYCIN                         /00314402/ [Concomitant]
     Active Substance: VANCOMYCIN
     Indication: STAPHYLOCOCCAL SEPSIS
     Dosage: 0.5 G, QD
     Route: 041
     Dates: start: 20140530, end: 20140530
  18. TAKEPRON [Concomitant]
     Active Substance: LANSOPRAZOLE
     Indication: PROPHYLAXIS
     Dosage: 15 MG, QD
     Route: 048
     Dates: start: 20140601
  19. ESLAX [Concomitant]
     Active Substance: ROCURONIUM BROMIDE
     Indication: MEDIASTINAL OPERATION
     Dosage: 50 MG, QD
     Route: 051
     Dates: start: 20140531, end: 20140531
  20. DORMICUM                           /00634101/ [Concomitant]
     Indication: MEDIASTINAL OPERATION
     Dosage: 10 MG, UNK
     Route: 051
     Dates: start: 20140531, end: 20140531
  21. HANP [Concomitant]
     Active Substance: CARPERITIDE
     Indication: CARDIAC FAILURE
     Dosage: 2 MG, QD
     Route: 051
     Dates: start: 20140606, end: 20140606
  22. ALDACTONE [Concomitant]
     Active Substance: SPIRONOLACTONE
     Indication: CARDIAC FAILURE
     Dosage: 25 MG, QD
     Route: 048
     Dates: start: 20140603
  23. SLONNON [Concomitant]
     Active Substance: ARGATROBAN
     Indication: PROPHYLAXIS
     Dosage: 10 MG, QD
     Route: 051
     Dates: start: 20140606, end: 20140606

REACTIONS (7)
  - Arrhythmia [Recovering/Resolving]
  - White blood cell count increased [Unknown]
  - Blood urea increased [Not Recovered/Not Resolved]
  - C-reactive protein increased [Unknown]
  - Cardiac failure [Not Recovered/Not Resolved]
  - Diabetes mellitus [Not Recovered/Not Resolved]
  - Overdose [Unknown]

NARRATIVE: CASE EVENT DATE: 20140601
